FAERS Safety Report 25202986 (Version 1)
Quarter: 2025Q2

REPORT INFORMATION
  Report Type: Spontaneous
  Country: CA (occurrence: CA)
  Receive Date: 20250416
  Receipt Date: 20250416
  Transmission Date: 20250716
  Serious: No
  Sender: TOLMAR
  Company Number: CA-TOLMAR, INC.-25CA058129

PATIENT

DRUGS (1)
  1. ELIGARD [Suspect]
     Active Substance: LEUPROLIDE ACETATE
     Indication: Prostate cancer
     Route: 058
     Dates: start: 20250326

REACTIONS (2)
  - Intercepted product preparation error [Unknown]
  - Device defective [Unknown]

NARRATIVE: CASE EVENT DATE: 20250326
